FAERS Safety Report 23074885 (Version 1)
Quarter: 2023Q4

REPORT INFORMATION
  Report Type: Spontaneous
  Country: IT (occurrence: IT)
  Receive Date: 20231017
  Receipt Date: 20231017
  Transmission Date: 20240109
  Serious: Yes (Other)
  Sender: FDA-Public Use
  Company Number: IT-SANDOZ-SDZ2023IT035119

PATIENT
  Age: 58 Year
  Sex: Female

DRUGS (4)
  1. CLARITHROMYCIN [Suspect]
     Active Substance: CLARITHROMYCIN
     Indication: Mycobacterium abscessus infection
     Dosage: 1000 MILLIGRAM
     Route: 048
  2. AMIKACIN [Suspect]
     Active Substance: AMIKACIN
     Indication: Mycobacterium abscessus infection
     Dosage: 500 MILLIGRAM (750 MG, ON SUNDAY)
     Route: 042
  3. AMIKACIN [Suspect]
     Active Substance: AMIKACIN
     Dosage: 750 MG (750 MG, FROM MONDAY TO SATURDAY)
     Route: 042
  4. DOXYCYCLINE [Suspect]
     Active Substance: DOXYCYCLINE
     Indication: Mycobacterium abscessus infection
     Dosage: 200 MG
     Route: 065

REACTIONS (2)
  - Pathogen resistance [Recovered/Resolved]
  - Drug intolerance [Unknown]
